FAERS Safety Report 7374347-3 (Version None)
Quarter: 2011Q1

REPORT INFORMATION
  Report Type: 
  Country: None (occurrence: None)
  Receive Date: 20110316
  Receipt Date: 20110316
  Transmission Date: 20110831
  Serious: Yes (Hospitalization, Other)
  Sender: FDA-Public Use
  Company Number: 2011S1000290

PATIENT
  Age: 55 Year
  Sex: Female

DRUGS (3)
  1. ADALAT [Concomitant]
  2. LIVALO [Suspect]
     Indication: TYPE IIA HYPERLIPIDAEMIA
     Dosage: 2 MG; 1X; PO
     Route: 048
     Dates: start: 20100407
  3. ASPIRIN [Concomitant]

REACTIONS (2)
  - DIABETES MELLITUS [None]
  - DRY MOUTH [None]
